FAERS Safety Report 18238435 (Version 1)
Quarter: 2020Q3

REPORT INFORMATION
  Report Type: Spontaneous
  Country: FR (occurrence: FR)
  Receive Date: 20200907
  Receipt Date: 20200907
  Transmission Date: 20201103
  Serious: Yes (Hospitalization, Other)
  Sender: FDA-Public Use
  Company Number: FR-SHIRE-FR202028495

PATIENT

DRUGS (15)
  1. ADVATE [Suspect]
     Active Substance: ANTIHEMOPHILIC FACTOR, HUMAN RECOMBINANT
     Indication: POST PROCEDURAL HAEMORRHAGE
     Dosage: 1500 INTERNATIONAL UNIT
     Route: 042
     Dates: start: 20200325, end: 20200401
  2. ADVATE [Suspect]
     Active Substance: ANTIHEMOPHILIC FACTOR, HUMAN RECOMBINANT
     Dosage: 1500 INTERNATIONAL UNIT
     Route: 042
     Dates: start: 20200325, end: 20200401
  3. ADVATE [Suspect]
     Active Substance: ANTIHEMOPHILIC FACTOR, HUMAN RECOMBINANT
     Dosage: 1500 INTERNATIONAL UNIT
     Route: 042
     Dates: start: 20200325, end: 20200401
  4. ADVATE [Suspect]
     Active Substance: ANTIHEMOPHILIC FACTOR, HUMAN RECOMBINANT
     Indication: POST PROCEDURAL HAEMORRHAGE
     Dosage: 1500 INTERNATIONAL UNIT
     Route: 042
     Dates: start: 20200325, end: 20200401
  5. ADVATE [Suspect]
     Active Substance: ANTIHEMOPHILIC FACTOR, HUMAN RECOMBINANT
     Dosage: 1500 INTERNATIONAL UNIT
     Route: 042
     Dates: start: 20200325, end: 20200401
  6. ADVATE [Suspect]
     Active Substance: ANTIHEMOPHILIC FACTOR, HUMAN RECOMBINANT
     Dosage: 1500 INTERNATIONAL UNIT
     Route: 042
     Dates: start: 20200325, end: 20200401
  7. ADVATE [Suspect]
     Active Substance: ANTIHEMOPHILIC FACTOR, HUMAN RECOMBINANT
     Dosage: 1500 INTERNATIONAL UNIT
     Route: 042
     Dates: start: 20200325, end: 20200401
  8. ADVATE [Suspect]
     Active Substance: ANTIHEMOPHILIC FACTOR, HUMAN RECOMBINANT
     Dosage: 1500 INTERNATIONAL UNIT
     Route: 042
     Dates: start: 20200325, end: 20200401
  9. ADVATE [Suspect]
     Active Substance: ANTIHEMOPHILIC FACTOR, HUMAN RECOMBINANT
     Dosage: 1500 INTERNATIONAL UNIT
     Route: 042
     Dates: start: 20200325, end: 20200401
  10. ADVATE [Suspect]
     Active Substance: ANTIHEMOPHILIC FACTOR, HUMAN RECOMBINANT
     Dosage: 1500 INTERNATIONAL UNIT
     Route: 042
     Dates: start: 20200325, end: 20200401
  11. ADVATE [Suspect]
     Active Substance: ANTIHEMOPHILIC FACTOR, HUMAN RECOMBINANT
     Dosage: 1500 INTERNATIONAL UNIT
     Route: 042
     Dates: start: 20200325, end: 20200401
  12. ADVATE [Suspect]
     Active Substance: ANTIHEMOPHILIC FACTOR, HUMAN RECOMBINANT
     Indication: POST PROCEDURAL HAEMORRHAGE
     Dosage: 1500 INTERNATIONAL UNIT
     Route: 042
     Dates: start: 20200325, end: 20200401
  13. ADVATE [Suspect]
     Active Substance: ANTIHEMOPHILIC FACTOR, HUMAN RECOMBINANT
     Dosage: 1500 INTERNATIONAL UNIT
     Route: 042
     Dates: start: 20200325, end: 20200401
  14. ADVATE [Suspect]
     Active Substance: ANTIHEMOPHILIC FACTOR, HUMAN RECOMBINANT
     Dosage: 1500 INTERNATIONAL UNIT
     Route: 042
     Dates: start: 20200325, end: 20200401
  15. ADVATE [Suspect]
     Active Substance: ANTIHEMOPHILIC FACTOR, HUMAN RECOMBINANT
     Dosage: 1500 INTERNATIONAL UNIT
     Route: 042
     Dates: start: 20200325, end: 20200401

REACTIONS (2)
  - Anti factor VIII antibody positive [Not Recovered/Not Resolved]
  - Haematoma [Not Recovered/Not Resolved]

NARRATIVE: CASE EVENT DATE: 202004
